FAERS Safety Report 24696007 (Version 1)
Quarter: 2024Q4

REPORT INFORMATION
  Report Type: Report from Study
  Country: US (occurrence: US)
  Receive Date: 20241204
  Receipt Date: 20241204
  Transmission Date: 20250115
  Serious: Yes (Other)
  Sender: ALEXION PHARMACEUTICALS
  Company Number: US-AstraZeneca-CH-00756287A

PATIENT

DRUGS (6)
  1. ACALABRUTINIB [Suspect]
     Active Substance: ACALABRUTINIB
     Indication: Chronic lymphocytic leukaemia
     Dosage: 100 MILLIGRAM, BID
  2. ACALABRUTINIB [Suspect]
     Active Substance: ACALABRUTINIB
     Dosage: 100 MILLIGRAM, BID
  3. ACALABRUTINIB [Suspect]
     Active Substance: ACALABRUTINIB
     Dosage: 100 MILLIGRAM, BID
  4. ACALABRUTINIB [Suspect]
     Active Substance: ACALABRUTINIB
     Dosage: 100 MILLIGRAM, BID
  5. HYOSCYAMINE [Concomitant]
     Active Substance: HYOSCYAMINE
  6. HYOSCYAMINE [Concomitant]
     Active Substance: HYOSCYAMINE
     Route: 065

REACTIONS (7)
  - Gastrointestinal polyp [Unknown]
  - Abdominal pain upper [Unknown]
  - Depression [Unknown]
  - Heart rate decreased [Unknown]
  - Thyroid disorder [Unknown]
  - Splenic lesion [Unknown]
  - Erectile dysfunction [Unknown]
